FAERS Safety Report 4482621-3 (Version None)
Quarter: 2004Q4

REPORT INFORMATION
  Report Type: 
  Country: None (occurrence: None)
  Receive Date: 20041022
  Receipt Date: 20040209
  Transmission Date: 20050328
  Serious: Yes (Other)
  Sender: FDA-Public Use
  Company Number: BE-JNJFOC-20040202257

PATIENT
  Age: 59 Year
  Sex: Female

DRUGS (2)
  1. PROPULSID [Suspect]
     Route: 065
  2. PROPULSID [Suspect]
     Route: 065

REACTIONS (1)
  - ELECTROCARDIOGRAM QT PROLONGED [None]
